FAERS Safety Report 12264035 (Version 1)
Quarter: 2016Q2

REPORT INFORMATION
  Report Type: Spontaneous
  Country: US (occurrence: US)
  Receive Date: 20160413
  Receipt Date: 20160413
  Transmission Date: 20160815
  Serious: No
  Sender: FDA-Public Use
  Company Number: US-JNJFOC-20160314112

PATIENT
  Age: 63 Year
  Sex: Female
  Weight: 82.56 kg

DRUGS (5)
  1. DILTIAZEM HCL [Concomitant]
     Active Substance: DILTIAZEM HYDROCHLORIDE
     Indication: CARDIAC DISORDER
     Dosage: 30 YEARS
     Route: 065
  2. MOTRIN IB [Suspect]
     Active Substance: IBUPROFEN
     Indication: PROCEDURAL PAIN
     Route: 048
  3. LOSARTAN AND HYDROCHLOROTHIAZIDE [Concomitant]
     Active Substance: HYDROCHLOROTHIAZIDE\LOSARTAN POTASSIUM
     Indication: HYPERTENSION
     Dosage: 30 YEARS
     Route: 065
  4. MOTRIN IB [Suspect]
     Active Substance: IBUPROFEN
     Route: 048
  5. LIPITOR [Concomitant]
     Active Substance: ATORVASTATIN CALCIUM
     Indication: BLOOD CHOLESTEROL INCREASED
     Dosage: 20MGH DAILY
     Route: 065

REACTIONS (4)
  - Off label use [Recovering/Resolving]
  - Faeces hard [Recovering/Resolving]
  - Product use issue [Recovering/Resolving]
  - Constipation [Recovering/Resolving]
